FAERS Safety Report 13509793 (Version 1)
Quarter: 2017Q2

REPORT INFORMATION
  Report Type: Spontaneous
  Country: US (occurrence: US)
  Receive Date: 20170503
  Receipt Date: 20170503
  Transmission Date: 20170830
  Serious: Yes (Other)
  Sender: FDA-Public Use
  Company Number: US-SA-2017SA043260

PATIENT
  Age: 63 Year
  Sex: Female
  Weight: 58 kg

DRUGS (14)
  1. OMEPRAZOLE. [Concomitant]
     Active Substance: OMEPRAZOLE
  2. FLONASE [Concomitant]
     Active Substance: FLUTICASONE PROPIONATE
  3. CALTRATE +D [Concomitant]
  4. VITAMIN E [Concomitant]
     Active Substance: .ALPHA.-TOCOPHEROL
  5. IBUPROFEN. [Concomitant]
     Active Substance: IBUPROFEN
  6. MULTIPLE VITAMINS [Concomitant]
     Active Substance: VITAMINS
  7. PREDNISONE. [Concomitant]
     Active Substance: PREDNISONE
  8. ALLEGRA [Concomitant]
     Active Substance: FEXOFENADINE HYDROCHLORIDE
  9. ALIROCUMAB PREFILLED PEN [Concomitant]
     Active Substance: ALIROCUMAB
     Indication: PRODUCT USED FOR UNKNOWN INDICATION
  10. ENBREL [Concomitant]
     Active Substance: ETANERCEPT
  11. OMEGA 3-6-9 [Concomitant]
     Active Substance: FISH OIL
  12. PRALUENT [Suspect]
     Active Substance: ALIROCUMAB
     Indication: PRODUCT USED FOR UNKNOWN INDICATION
     Route: 065
  13. JUXTAPID [Suspect]
     Active Substance: LOMITAPIDE MESYLATE
     Indication: TYPE IIA HYPERLIPIDAEMIA
     Route: 048
     Dates: start: 20150514
  14. HYDROCHLOROTHIAZIDE. [Concomitant]
     Active Substance: HYDROCHLOROTHIAZIDE

REACTIONS (4)
  - Pain [Unknown]
  - Liver disorder [Unknown]
  - Hepatic enzyme increased [Unknown]
  - Fatigue [Unknown]

NARRATIVE: CASE EVENT DATE: 2016
